FAERS Safety Report 8353104-5 (Version None)
Quarter: 2012Q2

REPORT INFORMATION
  Report Type: 
  Country: None (occurrence: None)
  Receive Date: 20120511
  Receipt Date: 20120507
  Transmission Date: 20120825
  Serious: No
  Sender: FDA-Public Use
  Company Number: US-BAYER-2012-045885

PATIENT

DRUGS (1)
  1. NAPROXEN SODIUM [Suspect]
     Dosage: UNK
     Route: 048
     Dates: start: 20120501

REACTIONS (2)
  - GASTRIC DISORDER [None]
  - ABDOMINAL PAIN UPPER [None]
